FAERS Safety Report 6106291-3 (Version None)
Quarter: 2009Q1

REPORT INFORMATION
  Report Type: 
  Country: None (occurrence: None)
  Receive Date: 20090306
  Receipt Date: 20090226
  Transmission Date: 20090719
  Serious: Yes (Other)
  Sender: FDA-Public Use
  Company Number: PHBS2007BR17560

PATIENT
  Sex: Female
  Weight: 65 kg

DRUGS (4)
  1. ACLASTA [Suspect]
     Indication: OSTEOPOROSIS POSTMENOPAUSAL
     Dosage: 5MG/100ML ONCE/SINGLE
     Route: 042
     Dates: start: 20071017
  2. SIMVASTATIN [Concomitant]
     Dosage: 20 MG, UNK
  3. GARDENAL [Concomitant]
     Indication: EPILEPSY
     Dosage: 250 MG, UNK
  4. OSCAL 500-D [Concomitant]
     Indication: PROPHYLAXIS
     Dosage: 500 MG, QD

REACTIONS (8)
  - ARTHRALGIA [None]
  - BACK PAIN [None]
  - HYPOCALCAEMIA [None]
  - MALAISE [None]
  - MYALGIA [None]
  - PAIN [None]
  - PARALYSIS [None]
  - SYNCOPE [None]
